FAERS Safety Report 10870516 (Version 1)
Quarter: 2015Q1

REPORT INFORMATION
  Report Type: Spontaneous
  Country: US (occurrence: US)
  Receive Date: 20150226
  Receipt Date: 20150226
  Transmission Date: 20150721
  Serious: No
  Sender: FDA-Public Use
  Company Number: US-TEVA-489635USA

PATIENT
  Age: 47 Year
  Sex: Female

DRUGS (1)
  1. AMPHETAMINE W/DEXTROAMPHETAMINE [Suspect]
     Active Substance: AMPHETAMINE SULFATE\DEXTROAMPHETAMINE
     Dosage: 100 MILLIGRAM DAILY; 40MG AM, 40MG AFTERNOON, 20MG PM

REACTIONS (3)
  - Laziness [Unknown]
  - Asthenia [Unknown]
  - Depression [Unknown]
